FAERS Safety Report 18640435 (Version 1)
Quarter: 2020Q4

REPORT INFORMATION
  Report Type: Other
  Country: DE (occurrence: DE)
  Receive Date: 20201221
  Receipt Date: 20201221
  Transmission Date: 20210114
  Serious: Yes (Other)
  Sender: FDA-Public Use
  Company Number: DE-MACLEODS PHARMACEUTICALS US LTD-MAC2020029506

PATIENT

DRUGS (5)
  1. FOLSAURE [Concomitant]
     Active Substance: FOLIC ACID
     Indication: PROPHYLAXIS OF NEURAL TUBE DEFECT
     Dosage: UNK, 6.3. - 9.3. GESTATIONAL WEEK
     Route: 064
     Dates: start: 20190529, end: 20190619
  2. ESCITALOPRAM [Suspect]
     Active Substance: ESCITALOPRAM OXALATE
     Indication: PRODUCT USED FOR UNKNOWN INDICATION
     Dosage: UNK, 0. - 38.3. GESTATIONAL WEEK
     Route: 064
     Dates: start: 20190414, end: 20200108
  3. MIRTAZAPIN [Suspect]
     Active Substance: MIRTAZAPINE
     Indication: PRODUCT USED FOR UNKNOWN INDICATION
     Dosage: 30 MILLIGRAM, QD, 0. - 38.3. GESTATIONAL WEEK
     Route: 064
     Dates: start: 20190414, end: 20200108
  4. SUBSTITOL RET.[MORPHINE] [Suspect]
     Active Substance: MORPHINE
     Indication: PRODUCT USED FOR UNKNOWN INDICATION
     Dosage: 400 MILLIGRAM, QD, 0. - 38.3. GESTATIONAL WEEK
     Route: 064
     Dates: start: 20190414, end: 20200108
  5. CETIRIZINE [Concomitant]
     Active Substance: CETIRIZINE HYDROCHLORIDE
     Indication: SEASONAL ALLERGY
     Dosage: UNK, PRN, 0. - 9.3. GESTATIONAL WEEK, IF REQUIRED
     Route: 064
     Dates: start: 20190414, end: 20190619

REACTIONS (4)
  - Small for dates baby [Recovered/Resolved]
  - Respiratory disorder neonatal [Recovered/Resolved]
  - Foetal exposure during pregnancy [Unknown]
  - Drug withdrawal syndrome neonatal [Recovered/Resolved]

NARRATIVE: CASE EVENT DATE: 20200108
